FAERS Safety Report 12445024 (Version 1)
Quarter: 2016Q2

REPORT INFORMATION
  Report Type: Spontaneous
  Country: ES (occurrence: ES)
  Receive Date: 20160607
  Receipt Date: 20160607
  Transmission Date: 20160815
  Serious: Yes (Hospitalization)
  Sender: FDA-Public Use
  Company Number: ES-ASTRAZENECA-2016SE56511

PATIENT
  Sex: Female

DRUGS (3)
  1. DAPAGLIFLOZIN [Suspect]
     Active Substance: DAPAGLIFLOZIN
     Route: 048
  2. INSULIN [Concomitant]
     Active Substance: INSULIN NOS
  3. ORAL ANTIDIABETIC DRUGS [Concomitant]

REACTIONS (4)
  - Bone cyst [Unknown]
  - Ketoacidosis [Recovered/Resolved]
  - Infection [Unknown]
  - Ulcer [Unknown]
